FAERS Safety Report 15136398 (Version 1)
Quarter: 2018Q4

REPORT INFORMATION
  Report Type: Spontaneous
  Country: FR (occurrence: FR)
  Receive Date: 20180712
  Receipt Date: 20180712
  Transmission Date: 20190204
  Serious: No
  Sender: FDA-Public Use
  Company Number: FR-B. BRAUN MEDICAL INC.-2051897

PATIENT
  Age: 64 Year
  Sex: Male

DRUGS (15)
  1. NOVORAPID [Suspect]
     Active Substance: INSULIN ASPART
     Dates: start: 20180325, end: 20180412
  2. AMOXICILLIN MYLAN [Suspect]
     Active Substance: AMOXICILLIN
     Route: 048
     Dates: start: 20180317, end: 20180323
  3. IPRATROPIUM ARROW [Suspect]
     Active Substance: IPRATROPIUM
     Route: 055
     Dates: start: 20180327, end: 20180412
  4. DALACINE [Suspect]
     Active Substance: CLINDAMYCIN
     Route: 042
     Dates: start: 20180329, end: 20180403
  5. SALBUTAMOL MYLAN [Suspect]
     Active Substance: ALBUTEROL
     Route: 055
     Dates: start: 20180327, end: 20180412
  6. DOLIPRANE [Suspect]
     Active Substance: ACETAMINOPHEN
     Route: 048
     Dates: start: 20180325, end: 20180412
  7. VANCOMYCIN SANDOZ [Suspect]
     Active Substance: VANCOMYCIN
     Route: 042
     Dates: start: 20180325, end: 20180326
  8. CEFAZOLIN MYLAN [Suspect]
     Active Substance: CEFAZOLIN
     Route: 042
     Dates: start: 20180324, end: 20180425
  9. GENTAMICINE PAPHARMA [Suspect]
     Active Substance: GENTAMICIN
     Route: 042
     Dates: start: 20180329, end: 20180329
  10. CEFTRIAXONE MYLAN [Suspect]
     Active Substance: CEFTRIAXONE
     Route: 042
     Dates: start: 20180323, end: 20180324
  11. CREON [Suspect]
     Active Substance: PANCRELIPASE AMYLASE\PANCRELIPASE LIPASE\PANCRELIPASE PROTEASE
     Route: 048
     Dates: start: 20180325, end: 20180410
  12. LOVENOX [Suspect]
     Active Substance: ENOXAPARIN SODIUM
     Route: 058
     Dates: start: 20180325
  13. METRONIDAZOLE INJECTION USP (5 MG/ML) IN PAB? PLASTIC CONTAINER (NDA 0 [Suspect]
     Active Substance: METRONIDAZOLE
     Indication: LUNG INFECTION
     Route: 042
     Dates: start: 20180330, end: 20180412
  14. ECONAZOLE ARROW LP 150MG, PROLONGED-RELEASE VAGINAL CAPSULE [Suspect]
     Active Substance: ECONAZOLE
     Route: 003
     Dates: start: 20180325
  15. SPECIAFOLDINE [Suspect]
     Active Substance: FOLIC ACID
     Route: 048
     Dates: start: 20180325

REACTIONS (2)
  - Rash maculo-papular [Recovered/Resolved]
  - Rash morbilliform [Recovered/Resolved]

NARRATIVE: CASE EVENT DATE: 20180402
